FAERS Safety Report 7279143-3 (Version None)
Quarter: 2011Q1

REPORT INFORMATION
  Report Type: 
  Country: None (occurrence: None)
  Receive Date: 20110207
  Receipt Date: 20110202
  Transmission Date: 20110831
  Serious: Yes (Life-Threatening, Hospitalization, Other)
  Sender: FDA-Public Use
  Company Number: JP-ABBOTT-10P-087-0689028-00

PATIENT
  Sex: Male
  Weight: 41 kg

DRUGS (8)
  1. PRECIPITATED CALCIUM CARBONATE [Concomitant]
     Indication: GASTRIC ULCER
     Route: 048
     Dates: start: 20101115
  2. HUMIRA [Suspect]
     Indication: CROHN'S DISEASE
     Route: 058
     Dates: start: 20101125
  3. LANSOPRAZOLE [Suspect]
     Indication: GASTRIC ULCER
     Route: 048
     Dates: start: 20101127, end: 20101209
  4. OMEPRAZOLE [Concomitant]
     Indication: GASTRIC ULCER
     Route: 042
     Dates: start: 20101120, end: 20101126
  5. CETIRIZINE HYDROCHLORIDE [Concomitant]
     Indication: SEBORRHOEIC DERMATITIS
     Route: 048
     Dates: start: 20101112, end: 20101120
  6. CETIRIZINE HYDROCHLORIDE [Concomitant]
     Route: 048
     Dates: start: 20101123, end: 20110104
  7. FAMOTIDINE [Suspect]
     Route: 048
     Dates: start: 20110104
  8. FAMOTIDINE [Suspect]
     Indication: GASTRIC ULCER
     Route: 048
     Dates: start: 20101210, end: 20110103

REACTIONS (7)
  - HYPERKALAEMIA [None]
  - RENAL HAEMORRHAGE [None]
  - VOMITING [None]
  - RENAL CYST RUPTURED [None]
  - PLATELET COUNT DECREASED [None]
  - ABDOMINAL PAIN [None]
  - DEHYDRATION [None]
